FAERS Safety Report 6097895-5 (Version None)
Quarter: 2009Q1

REPORT INFORMATION
  Report Type: 
  Country: None (occurrence: None)
  Receive Date: 20090227
  Receipt Date: 20090220
  Transmission Date: 20090719
  Serious: Yes (Other)
  Sender: FDA-Public Use
  Company Number: DE-ALLERGAN-0816086US

PATIENT
  Sex: Female

DRUGS (3)
  1. LUMIGAN [Suspect]
     Indication: GLAUCOMA
     Dosage: UNK, QD
     Route: 047
     Dates: start: 20060101, end: 20081101
  2. ANTIHYPERTENSIVES [Concomitant]
  3. AZOPT [Concomitant]

REACTIONS (5)
  - BLOOD PRESSURE INCREASED [None]
  - GROWTH OF EYELASHES [None]
  - MACULAR DEGENERATION [None]
  - SKIN DISCOLOURATION [None]
  - VISUAL ACUITY REDUCED [None]
